FAERS Safety Report 15305763 (Version 1)
Quarter: 2018Q3

REPORT INFORMATION
  Report Type: Spontaneous
  Country: US (occurrence: US)
  Receive Date: 20180810
  Receipt Date: 20180810
  Transmission Date: 20181010
  Serious: Yes (Disabling, Other)
  Sender: FDA-Public Use
  Company Number: None

PATIENT
  Age: 70 Year
  Sex: Female
  Weight: 81 kg

DRUGS (11)
  1. OMEGA 3 [Concomitant]
     Active Substance: OMEGA-3 FATTY ACIDS
  2. XANAX [Concomitant]
     Active Substance: ALPRAZOLAM
  3. SONATA [Concomitant]
     Active Substance: ZALEPLON
  4. VITAMIN D3 [Concomitant]
     Active Substance: CHOLECALCIFEROL
  5. PREDNISONE. [Suspect]
     Active Substance: PREDNISONE
     Indication: RASH
     Route: 048
     Dates: start: 20180605, end: 20180704
  6. EFFEXOR [Concomitant]
     Active Substance: VENLAFAXINE HYDROCHLORIDE
  7. VITAMIN K [Concomitant]
     Active Substance: PHYTONADIONE
  8. ARMOUR THYROID [Concomitant]
     Active Substance: THYROID, PORCINE
  9. MILK THISTLE [Concomitant]
     Active Substance: DIETARY SUPPLEMENT\HERBALS\MILK THISTLE
  10. MULTI?VITAMIN MINERAL [Concomitant]
  11. KENALOG [Suspect]
     Active Substance: TRIAMCINOLONE ACETONIDE

REACTIONS (7)
  - Euphoric mood [None]
  - Headache [None]
  - Speech disorder [None]
  - Psychotic disorder [None]
  - Hyperhidrosis [None]
  - Memory impairment [None]
  - Rash [None]

NARRATIVE: CASE EVENT DATE: 20180605
